FAERS Safety Report 5120229-7 (Version None)
Quarter: 2006Q3

REPORT INFORMATION
  Report Type: 
  Country: None (occurrence: None)
  Receive Date: 20060928
  Receipt Date: 20060915
  Transmission Date: 20061208
  Serious: Yes (Other)
  Sender: FDA-Public Use
  Company Number: 2006112844

PATIENT
  Age: 47 Year
  Sex: Female

DRUGS (4)
  1. LYRICA [Suspect]
     Indication: SCIATICA
     Dosage: 75 MG (75 MG, 1 IN 1 D), ORAL
     Route: 048
     Dates: start: 20060101
  2. NAPROXEN SODIUM [Suspect]
     Dosage: ORAL
     Route: 048
     Dates: start: 20060101, end: 20060901
  3. LANSOPRAZOLE [Suspect]
     Dosage: ORAL
     Route: 048
     Dates: start: 20060101, end: 20060901
  4. SURGESTONE (PROMEGESTONE) [Concomitant]

REACTIONS (1)
  - CORNEAL OEDEMA [None]
